FAERS Safety Report 8972398 (Version 2)
Quarter: 2013Q1

REPORT INFORMATION
  Report Type: Report from Study
  Country: FR (occurrence: FR)
  Receive Date: 20121218
  Receipt Date: 20130123
  Transmission Date: 20140127
  Serious: Yes (Hospitalization)
  Sender: FDA-Public Use
  Company Number: FR-ROCHE-1170858

PATIENT
  Age: 67 Year
  Sex: Male
  Weight: 64 kg

DRUGS (10)
  1. RITUXIMAB [Suspect]
     Indication: CHRONIC LYMPHOCYTIC LEUKAEMIA
     Route: 041
     Dates: start: 20110816
  2. RITUXIMAB [Suspect]
     Route: 041
     Dates: start: 20110715, end: 20110715
  3. RITUXIMAB [Suspect]
     Route: 042
     Dates: start: 20120717
  4. FLUDARABINE PHOSPHATE [Suspect]
     Indication: CHRONIC LYMPHOCYTIC LEUKAEMIA
     Route: 002
     Dates: start: 20110816, end: 20110818
  5. FLUDARABINE PHOSPHATE [Suspect]
     Route: 042
     Dates: start: 20110716
  6. CYCLOPHOSPHAMIDE [Suspect]
     Indication: CHRONIC LYMPHOCYTIC LEUKAEMIA
     Route: 002
     Dates: start: 20110816, end: 20110818
  7. CYCLOPHOSPHAMIDE [Suspect]
     Route: 042
     Dates: start: 20110716
  8. BACTRIM FORTE [Concomitant]
     Route: 065
  9. METHYLPREDNISOLONE [Concomitant]
     Indication: PREMEDICATION
     Route: 042
     Dates: start: 20110715, end: 20110715
  10. RANITIDINE [Concomitant]
     Indication: PREMEDICATION
     Route: 042
     Dates: start: 20110715, end: 20110715

REACTIONS (2)
  - Bone marrow failure [Recovered/Resolved]
  - Pyrexia [Recovered/Resolved]
